FAERS Safety Report 15883953 (Version 1)
Quarter: 2019Q1

REPORT INFORMATION
  Report Type: Spontaneous
  Country: US (occurrence: US)
  Receive Date: 20190129
  Receipt Date: 20190129
  Transmission Date: 20190417
  Serious: Yes (Disabling, Other)
  Sender: FDA-Public Use
  Company Number: None

PATIENT
  Age: 29 Year
  Sex: Female
  Weight: 79.38 kg

DRUGS (1)
  1. PARAGARD T 380A [Suspect]
     Active Substance: COPPER
     Dates: start: 20180416, end: 20181219

REACTIONS (4)
  - Dysmenorrhoea [None]
  - Alopecia [None]
  - Menorrhagia [None]
  - Blood copper increased [None]

NARRATIVE: CASE EVENT DATE: 20181201
